FAERS Safety Report 12889980 (Version 1)
Quarter: 2016Q4

REPORT INFORMATION
  Report Type: Spontaneous
  Country: US (occurrence: US)
  Receive Date: 20161027
  Receipt Date: 20161027
  Transmission Date: 20170207
  Serious: No
  Sender: FDA-Public Use
  Company Number: US-PRESTIGE BRANDS -1058966

PATIENT
  Age: 39 Year
  Sex: Female

DRUGS (1)
  1. MONISTAT 3 COMBINATION PACK [Suspect]
     Active Substance: MICONAZOLE NITRATE
     Indication: VULVOVAGINAL MYCOTIC INFECTION
     Route: 067
     Dates: start: 20160106, end: 20160106

REACTIONS (9)
  - Vaginal inflammation [Not Recovered/Not Resolved]
  - Drug ineffective [Not Recovered/Not Resolved]
  - Abdominal pain [Recovered/Resolved]
  - Vulvovaginal swelling [Not Recovered/Not Resolved]
  - Sleep disorder [Recovered/Resolved]
  - Vulvovaginal pain [Not Recovered/Not Resolved]
  - Vulvovaginal burning sensation [Recovered/Resolved]
  - Fatigue [Not Recovered/Not Resolved]
  - Vulvovaginal discomfort [Not Recovered/Not Resolved]

NARRATIVE: CASE EVENT DATE: 20160106
